FAERS Safety Report 23569571 (Version 1)
Quarter: 2024Q1

REPORT INFORMATION
  Report Type: Spontaneous
  Country: KR (occurrence: KR)
  Receive Date: 20240227
  Receipt Date: 20240227
  Transmission Date: 20240410
  Serious: Yes (Hospitalization, Other)
  Sender: FDA-Public Use
  Company Number: KR-SA-2024SA062678

PATIENT
  Age: 63 Year
  Sex: Female
  Weight: 60.7 kg

DRUGS (19)
  1. AFLIBERCEPT [Suspect]
     Active Substance: AFLIBERCEPT
     Indication: Rectal cancer
     Dosage: 244 MG, QOW
     Dates: start: 20210726, end: 20210726
  2. AFLIBERCEPT [Suspect]
     Active Substance: AFLIBERCEPT
     Dosage: UNK UNK, QOW
  3. IRINOTECAN HYDROCHLORIDE [Suspect]
     Active Substance: IRINOTECAN HYDROCHLORIDE
     Indication: Rectal cancer
     Dosage: 196 MG, QOW
     Dates: start: 20210726, end: 20210726
  4. IRINOTECAN HYDROCHLORIDE [Suspect]
     Active Substance: IRINOTECAN HYDROCHLORIDE
     Dosage: UNK
  5. CHLORPHENIRAMINE MALEATE [Concomitant]
     Active Substance: CHLORPHENIRAMINE MALEATE
     Indication: Prophylaxis
     Dosage: 4 MG
     Dates: start: 20210401
  6. BENZYDAMINE HYDROCHLORIDE [Concomitant]
     Active Substance: BENZYDAMINE HYDROCHLORIDE
     Indication: Stomatitis
     Dosage: UNK
     Dates: start: 20210316
  7. ALPRAZOLAM [Concomitant]
     Active Substance: ALPRAZOLAM
     Indication: Insomnia
     Dosage: 0.25 MG, QD
     Dates: start: 20200313
  8. MAGNESIUM OXIDE [Concomitant]
     Active Substance: MAGNESIUM OXIDE
     Indication: Constipation prophylaxis
     Dosage: 250 MG
     Dates: start: 20200401
  9. LOPERAMIDE HYDROCHLORIDE [Concomitant]
     Active Substance: LOPERAMIDE HYDROCHLORIDE
     Indication: Prophylaxis against diarrhoea
     Dosage: 2 MG
     Dates: start: 20210601
  10. MEGESTROL ACETATE [Concomitant]
     Active Substance: MEGESTROL ACETATE
     Indication: Nutritional supplementation
     Dosage: 10 ML
     Dates: start: 20210621
  11. OXYCODONE HYDROCHLORIDE [Concomitant]
     Active Substance: OXYCODONE HYDROCHLORIDE
     Indication: Tumour pain
     Dosage: 5 MG
     Dates: start: 20200420
  12. ACETAMINOPHEN\CODEINE\IBUPROFEN [Concomitant]
     Active Substance: ACETAMINOPHEN\CODEINE\IBUPROFEN
     Indication: Tumour pain
     Dosage: UNK
  13. PROPYLTHIOURACIL [Concomitant]
     Active Substance: PROPYLTHIOURACIL
     Indication: Hyperthyroidism
     Dosage: 500 MG, QD
  14. LINAGLIPTIN [Concomitant]
     Active Substance: LINAGLIPTIN
     Indication: Diabetes mellitus
     Dosage: 5 MG, QD
  15. AMLODIPINE BESYLATE [Concomitant]
     Active Substance: AMLODIPINE BESYLATE
     Indication: Hypertension
     Dosage: 5 MG, QD
     Dates: end: 20210825
  16. VALSARTAN [Concomitant]
     Active Substance: VALSARTAN
     Indication: Hypertension
     Dosage: 80 MG, QD
     Dates: end: 20210825
  17. METFORMIN HYDROCHLORIDE [Concomitant]
     Active Substance: METFORMIN HYDROCHLORIDE
     Indication: Diabetes mellitus
     Dosage: 750 MG, QD
  18. ROSUVASTATIN CALCIUM [Concomitant]
     Active Substance: ROSUVASTATIN CALCIUM
     Indication: Hypertension
     Dosage: 5 MG, QD
  19. CODEINE PHOSPHATE [Concomitant]
     Active Substance: CODEINE PHOSPHATE

REACTIONS (11)
  - Hyperkalaemia [Recovered/Resolved]
  - Biliary abscess [Recovered/Resolved]
  - Hypotension [Recovered/Resolved]
  - Pleural effusion [Recovered/Resolved]
  - Hyponatraemia [Recovered/Resolved]
  - Flank pain [Not Recovered/Not Resolved]
  - Hypoalbuminaemia [Not Recovered/Not Resolved]
  - Nausea [Not Recovered/Not Resolved]
  - Proteinuria [Not Recovered/Not Resolved]
  - Anaemia [Not Recovered/Not Resolved]
  - Weight decreased [Not Recovered/Not Resolved]

NARRATIVE: CASE EVENT DATE: 20210726
